FAERS Safety Report 6102971-4 (Version None)
Quarter: 2009Q1

REPORT INFORMATION
  Report Type: 
  Country: None (occurrence: None)
  Receive Date: 20090305
  Receipt Date: 20090223
  Transmission Date: 20090719
  Serious: Yes (Hospitalization)
  Sender: FDA-Public Use
  Company Number: PHHY2009FR06789

PATIENT
  Age: 20 Year
  Sex: Male

DRUGS (3)
  1. AREDIA [Suspect]
     Dosage: 60 MG ONE TIME ONLY
     Route: 042
     Dates: start: 20090202
  2. TRAMADOL HCL [Concomitant]
     Dosage: ONE DAILY DOSE
     Route: 048
     Dates: start: 20090202
  3. PARACETAMOL [Concomitant]
     Dosage: 1 G, QID
     Route: 048
     Dates: start: 20090202

REACTIONS (2)
  - MONARTHRITIS [None]
  - MUSCULOSKELETAL CHEST PAIN [None]
